FAERS Safety Report 6090986-4 (Version None)
Quarter: 2009Q1

REPORT INFORMATION
  Report Type: 
  Country: None (occurrence: None)
  Receive Date: 20090219
  Receipt Date: 20090219
  Transmission Date: 20090719
  Serious: Yes (Death)
  Sender: FDA-Public Use
  Company Number: None

PATIENT
  Age: 83 Year
  Sex: Female

DRUGS (12)
  1. RECLAST [Suspect]
     Route: 042
  2. SEPTRA [Concomitant]
  3. LASIX [Concomitant]
  4. LIPITOR [Concomitant]
  5. NORVASC [Concomitant]
  6. WARFARIN SODIUM [Concomitant]
  7. DILTIAZEM [Concomitant]
  8. PROTONIX [Concomitant]
  9. DARVOCET [Concomitant]
  10. VICODIN [Concomitant]
  11. REMERON [Concomitant]
  12. DUONEBS [Concomitant]

REACTIONS (2)
  - BLOOD POTASSIUM INCREASED [None]
  - RENAL FAILURE ACUTE [None]
